FAERS Safety Report 7406204-8 (Version None)
Quarter: 2011Q2

REPORT INFORMATION
  Report Type: 
  Country: None (occurrence: None)
  Receive Date: 20110411
  Receipt Date: 20110330
  Transmission Date: 20111010
  Serious: Yes (Other)
  Sender: FDA-Public Use
  Company Number: US-JNJFOC-20060307420

PATIENT
  Sex: Male

DRUGS (4)
  1. RISPERDAL [Suspect]
     Indication: SCHIZOPHRENIA
  2. SEROQUEL [Suspect]
     Indication: SCHIZOPHRENIA
  3. ZYPREXA [Suspect]
     Indication: SCHIZOPHRENIA
  4. DEPAKOTE [Concomitant]

REACTIONS (4)
  - ERECTILE DYSFUNCTION [None]
  - PANCREATITIS RELAPSING [None]
  - DIABETES MELLITUS [None]
  - HYPERTENSION [None]
